FAERS Safety Report 14350482 (Version 2)
Quarter: 2018Q4

REPORT INFORMATION
  Report Type: Spontaneous
  Country: JP (occurrence: JP)
  Receive Date: 20180104
  Receipt Date: 20181119
  Transmission Date: 20190204
  Serious: Yes (Death, Other)
  Sender: FDA-Public Use
  Company Number: JP-009507513-1801JPN001266

PATIENT
  Age: 36 Year
  Sex: Male

DRUGS (2)
  1. BEVACIZUMAB. [Suspect]
     Active Substance: BEVACIZUMAB
     Indication: ASTROCYTOMA MALIGNANT
     Dosage: 10 MG/KG ADMINISTERED BIWEEKLY
  2. TEMOZOLOMIDE. [Suspect]
     Active Substance: TEMOZOLOMIDE
     Indication: ASTROCYTOMA MALIGNANT
     Dosage: UNK

REACTIONS (4)
  - Necrotising colitis [Fatal]
  - Treatment failure [Unknown]
  - Proteinuria [Unknown]
  - Urticaria [Unknown]
